FAERS Safety Report 7452366-6 (Version None)
Quarter: 2011Q2

REPORT INFORMATION
  Report Type: 
  Country: None (occurrence: None)
  Receive Date: 20110502
  Receipt Date: 20110427
  Transmission Date: 20111010
  Serious: Yes (Hospitalization, Other)
  Sender: FDA-Public Use
  Company Number: BR-US-EMD SERONO, INC.-7056191

PATIENT
  Sex: Female

DRUGS (4)
  1. REBIF [Suspect]
     Indication: RELAPSING-REMITTING MULTIPLE SCLEROSIS
     Dates: start: 20090701
  2. CITALOPRAM [Concomitant]
  3. TRIPTANOL [Concomitant]
  4. TYLEX [Concomitant]

REACTIONS (9)
  - FACIAL SPASM [None]
  - GINGIVITIS [None]
  - DYSKINESIA [None]
  - HEMIPARESIS [None]
  - ATROPHY [None]
  - PANCREATIC INSUFFICIENCY [None]
  - MEMORY IMPAIRMENT [None]
  - PAIN [None]
  - GASTROINTESTINAL INFLAMMATION [None]
